FAERS Safety Report 15649860 (Version 15)
Quarter: 2019Q3

REPORT INFORMATION
  Report Type: Report from Study
  Country: BR (occurrence: BR)
  Receive Date: 20181123
  Receipt Date: 20190903
  Transmission Date: 20191004
  Serious: Yes (Disabling, Other)
  Sender: FDA-Public Use
  Company Number: PHHY2018BR150977

PATIENT
  Age: 57 Year
  Sex: Male
  Weight: 95 kg

DRUGS (12)
  1. COSENTYX [Suspect]
     Active Substance: SECUKINUMAB
     Dosage: 300 MG, QMO
     Route: 058
     Dates: start: 20181015
  2. COSENTYX [Suspect]
     Active Substance: SECUKINUMAB
     Dosage: 300 MG, QMO
     Route: 058
     Dates: start: 20181114
  3. METHOTREXATE. [Suspect]
     Active Substance: METHOTREXATE
     Dosage: UNK, QW (EVERY TUESDAY)
     Route: 065
  4. COSENTYX [Suspect]
     Active Substance: SECUKINUMAB
     Dosage: UNK
     Route: 065
     Dates: start: 20190320
  5. CAPTOPRIL. [Suspect]
     Active Substance: CAPTOPRIL
     Indication: PRODUCT USED FOR UNKNOWN INDICATION
     Route: 065
  6. COSENTYX [Suspect]
     Active Substance: SECUKINUMAB
     Indication: PSORIATIC ARTHROPATHY
     Dosage: UNK
     Route: 065
     Dates: start: 201805
  7. COSENTYX [Suspect]
     Active Substance: SECUKINUMAB
     Dosage: 300 MG, QW
     Route: 058
     Dates: start: 20180515
  8. COSENTYX [Suspect]
     Active Substance: SECUKINUMAB
     Dosage: 300 MG, QMO
     Route: 058
  9. LOSARTAN. [Suspect]
     Active Substance: LOSARTAN
     Indication: PRODUCT USED FOR UNKNOWN INDICATION
     Route: 065
  10. CYCLOBENZAPRINE. [Suspect]
     Active Substance: CYCLOBENZAPRINE
     Indication: PRODUCT USED FOR UNKNOWN INDICATION
     Dosage: UNK
     Route: 065
  11. METHOTREXATE. [Suspect]
     Active Substance: METHOTREXATE
     Indication: PRODUCT USED FOR UNKNOWN INDICATION
     Dosage: UNK
     Route: 065
  12. LEFLUNOMIDE. [Suspect]
     Active Substance: LEFLUNOMIDE
     Indication: PRODUCT USED FOR UNKNOWN INDICATION
     Dosage: UNK
     Route: 065

REACTIONS (41)
  - Glaucoma [Unknown]
  - Neoplasm [Not Recovered/Not Resolved]
  - Arthralgia [Recovering/Resolving]
  - Purulence [Unknown]
  - Concomitant disease aggravated [Not Recovered/Not Resolved]
  - Tremor [Unknown]
  - Drug ineffective [Unknown]
  - Hepatitis [Unknown]
  - Musculoskeletal pain [Not Recovered/Not Resolved]
  - Vision blurred [Not Recovered/Not Resolved]
  - Visual impairment [Not Recovered/Not Resolved]
  - Sleep disorder [Not Recovered/Not Resolved]
  - Arthritis [Not Recovered/Not Resolved]
  - Hyperhidrosis [Unknown]
  - Dyspnoea [Unknown]
  - Joint swelling [Recovering/Resolving]
  - Malaise [Unknown]
  - Thirst [Unknown]
  - Urine output increased [Unknown]
  - Fluid retention [Recovering/Resolving]
  - Cataract [Unknown]
  - Joint dislocation [Not Recovered/Not Resolved]
  - Pain [Recovering/Resolving]
  - Gout [Not Recovered/Not Resolved]
  - Drug resistance [Not Recovered/Not Resolved]
  - Chills [Not Recovered/Not Resolved]
  - Pain in extremity [Recovering/Resolving]
  - Infection [Unknown]
  - Peripheral swelling [Unknown]
  - Diarrhoea haemorrhagic [Unknown]
  - Diabetes mellitus [Not Recovered/Not Resolved]
  - Weight fluctuation [Unknown]
  - Ligament rupture [Recovering/Resolving]
  - Gait disturbance [Recovering/Resolving]
  - Tendon injury [Not Recovered/Not Resolved]
  - Fall [Unknown]
  - Rib fracture [Unknown]
  - Limb injury [Unknown]
  - Blood pressure inadequately controlled [Not Recovered/Not Resolved]
  - Asthenia [Unknown]
  - Dizziness [Unknown]

NARRATIVE: CASE EVENT DATE: 201805
